FAERS Safety Report 9701317 (Version 2)
Quarter: 2015Q3

REPORT INFORMATION
  Report Type: Spontaneous
  Country: US (occurrence: US)
  Receive Date: 20131121
  Receipt Date: 20150803
  Transmission Date: 20151125
  Serious: No
  Sender: FDA-Public Use
  Company Number: US-GILEAD-2008-0016413

PATIENT
  Age: 61 Year
  Sex: Female
  Weight: 66 kg

DRUGS (9)
  1. CALCITRATE [Concomitant]
     Active Substance: CALCIUM CITRATE
     Route: 048
  2. OXYGEN. [Concomitant]
     Active Substance: OXYGEN
     Route: 045
  3. FOSAMAX [Concomitant]
     Active Substance: ALENDRONATE SODIUM
     Route: 048
  4. LETAIRIS [Suspect]
     Active Substance: AMBRISENTAN
     Indication: PULMONARY ARTERIAL HYPERTENSION
     Route: 048
     Dates: start: 20080320, end: 20080418
  5. POTASSIUM [Concomitant]
     Active Substance: POTASSIUM
     Route: 048
  6. REVATIO [Concomitant]
     Active Substance: SILDENAFIL CITRATE
     Route: 048
  7. NORVASC [Concomitant]
     Active Substance: AMLODIPINE BESYLATE
     Route: 048
  8. NEURONTIN [Concomitant]
     Active Substance: GABAPENTIN
     Route: 048
  9. LASIX [Concomitant]
     Active Substance: FUROSEMIDE
     Route: 048

REACTIONS (4)
  - Weight increased [Recovered/Resolved]
  - Sinus congestion [Recovered/Resolved]
  - Fluid retention [Recovered/Resolved]
  - Dyspnoea [Recovered/Resolved]

NARRATIVE: CASE EVENT DATE: 20080403
